FAERS Safety Report 5611417-1 (Version None)
Quarter: 2008Q1

REPORT INFORMATION
  Report Type: 
  Country: None (occurrence: None)
  Receive Date: 20080201
  Receipt Date: 20080122
  Transmission Date: 20080703
  Serious: Yes (Death, Hospitalization, Other)
  Sender: FDA-Public Use
  Company Number: BR-PFIZER INC-2008002549

PATIENT
  Age: 83 Year
  Sex: Female

DRUGS (5)
  1. XALATAN [Suspect]
     Indication: GLAUCOMA
     Route: 047
  2. NOOTROPIL [Concomitant]
     Indication: CARDIOVASCULAR DISORDER
     Route: 048
  3. NEOZINE [Concomitant]
     Route: 048
  4. SULPIRIDE [Concomitant]
     Route: 048
  5. BROMAZEPAM [Concomitant]
     Route: 048

REACTIONS (8)
  - ABASIA [None]
  - CARDIAC ARREST [None]
  - CEREBROVASCULAR ACCIDENT [None]
  - DEPRESSION [None]
  - HYPOTHYROIDISM [None]
  - INTESTINAL OBSTRUCTION [None]
  - MEDICATION ERROR [None]
  - NO ADVERSE EVENT [None]
